FAERS Safety Report 7439520-4 (Version None)
Quarter: 2011Q2

REPORT INFORMATION
  Report Type: 
  Country: None (occurrence: None)
  Receive Date: 20110427
  Receipt Date: 20110415
  Transmission Date: 20111010
  Serious: Yes (Other)
  Sender: FDA-Public Use
  Company Number: FR-BRISTOL-MYERS SQUIBB COMPANY-15666977

PATIENT
  Age: 51 Year
  Sex: Male

DRUGS (4)
  1. LACIDIPINE [Interacting]
  2. LOPINAVIR/RITONAVIR [Interacting]
     Indication: HIV INFECTION
     Dosage: 1 DOSAGE FORM = 400/100MG
  3. METOPROLOL TARTRATE [Suspect]
  4. RAMIPRIL [Interacting]

REACTIONS (3)
  - DRUG INTERACTION [None]
  - HYPOTENSION [None]
  - ATRIOVENTRICULAR BLOCK [None]
